FAERS Safety Report 8142141-1 (Version None)
Quarter: 2012Q1

REPORT INFORMATION
  Report Type: 
  Country: None (occurrence: None)
  Receive Date: 20120216
  Receipt Date: 20120215
  Transmission Date: 20120608
  Serious: Yes (Death)
  Sender: FDA-Public Use
  Company Number: NZ-B.I. PHARMACEUTICALS,INC./RIDGEFIELD-2011-AU-02242AU

PATIENT
  Sex: Male
  Weight: 104 kg

DRUGS (7)
  1. ATENOLOL [Concomitant]
     Dosage: 50 MG
     Dates: start: 20091113
  2. NITROGLYCERIN [Concomitant]
     Dates: start: 20100216
  3. PRADAXA [Suspect]
     Indication: ATRIAL FIBRILLATION
     Dosage: 150 MG
     Dates: start: 20110812
  4. METFORMIN HCL [Concomitant]
     Dosage: 1500 MG
     Dates: start: 20101129
  5. PARACETAMOL [Concomitant]
     Dosage: 4000 MG
     Dates: start: 20110923
  6. DOXAZOSIN [Concomitant]
     Dosage: 1 MG
     Dates: start: 20110809
  7. SIMVASTATIN [Concomitant]
     Dosage: 20 MG
     Dates: start: 20091113

REACTIONS (2)
  - HAEMOPTYSIS [None]
  - DEATH [None]
